FAERS Safety Report 9429796 (Version 1)
Quarter: 2013Q3

REPORT INFORMATION
  Report Type: Spontaneous
  Country: ES (occurrence: None)
  Receive Date: 20130726
  Receipt Date: 20130726
  Transmission Date: 20140515
  Serious: Yes (Hospitalization)
  Sender: FDA-Public Use
  Company Number: AUR-APL-2013-06158

PATIENT
  Age: 86 Year
  Sex: Female

DRUGS (1)
  1. AMOXICILLIN+CLAVULANIC ACID [Suspect]
     Indication: URINARY TRACT INFECTION
     Dosage: STOPPED

REACTIONS (5)
  - Escherichia infection [None]
  - Urinary tract infection [None]
  - Disease recurrence [None]
  - Pneumonia klebsiella [None]
  - Pathogen resistance [None]
